FAERS Safety Report 8965160 (Version 11)
Quarter: 2015Q1

REPORT INFORMATION
  Report Type: Report from Study
  Country: FR (occurrence: FR)
  Receive Date: 20121214
  Receipt Date: 20150224
  Transmission Date: 20150721
  Serious: Yes (Hospitalization, Other)
  Sender: FDA-Public Use
  Company Number: PHHY2012FR113646

PATIENT
  Age: 73 Year
  Sex: Female
  Weight: 63 kg

DRUGS (16)
  1. TASIGNA [Suspect]
     Active Substance: NILOTINIB
     Dosage: 400 MG, QD
     Dates: start: 20121008, end: 20121113
  2. TASIGNA [Suspect]
     Active Substance: NILOTINIB
     Dosage: 200 MG, QD
     Route: 048
     Dates: start: 20130103, end: 20130121
  3. TASIGNA [Suspect]
     Active Substance: NILOTINIB
     Indication: CHRONIC MYELOID LEUKAEMIA
     Dosage: 400 MG, QD
     Route: 048
     Dates: start: 20120114
  4. TASIGNA [Suspect]
     Active Substance: NILOTINIB
     Dosage: 400 MG, QD
     Dates: start: 20121118, end: 20121122
  5. SPIRONOLACTONE ALTIZIDE [Concomitant]
     Indication: HYPERTENSION
     Route: 065
     Dates: start: 2005, end: 201210
  6. KARDEGIC [Concomitant]
     Active Substance: ASPIRIN LYSINE
     Indication: TRANSIENT ISCHAEMIC ATTACK
     Dosage: 75 MG, QD
     Route: 065
     Dates: start: 2005, end: 20120822
  7. KARDEGIC [Concomitant]
     Active Substance: ASPIRIN LYSINE
     Dosage: 75 MG, QOD
     Route: 065
     Dates: start: 20120823
  8. TASIGNA [Suspect]
     Active Substance: NILOTINIB
     Dosage: 200 MG, QD
     Dates: start: 20120823, end: 20121007
  9. TASIGNA [Suspect]
     Active Substance: NILOTINIB
     Dosage: 400 MG, DAILY
     Dates: start: 20130122
  10. DEBRIDAT//TRIMEBUTINE [Concomitant]
     Indication: CONSTIPATION
     Route: 065
     Dates: start: 201311
  11. NICOTINAMIDE [Concomitant]
     Active Substance: NIACINAMIDE
     Indication: CONJUNCTIVAL HAEMORRHAGE
     Dosage: 1 DF, TID
     Route: 065
     Dates: start: 20130119, end: 20130202
  12. TASIGNA [Suspect]
     Active Substance: NILOTINIB
     Dosage: 200 MG, QD
     Dates: start: 20121127, end: 20121128
  13. MACROGOL [Concomitant]
     Active Substance: POLYETHYLENE GLYCOLS
     Indication: CONSTIPATION
     Route: 065
     Dates: start: 201311
  14. TASIGNA [Suspect]
     Active Substance: NILOTINIB
     Dosage: 400 MG. QD
     Route: 048
     Dates: start: 20120221
  15. ESTROGEN [Concomitant]
     Active Substance: ESTRONE\SUS SCROFA OVARY
     Indication: PRODUCT USED FOR UNKNOWN INDICATION
     Route: 065
  16. DEXARIL [Concomitant]
     Indication: DRY SKIN
     Route: 065
     Dates: start: 20120112

REACTIONS (30)
  - Hepatocellular injury [Not Recovered/Not Resolved]
  - Hyperbilirubinaemia [Recovered/Resolved]
  - Hyperbilirubinaemia [Recovered/Resolved]
  - Hepatocellular injury [Recovered/Resolved]
  - Pruritus [Recovering/Resolving]
  - Folliculitis [Recovered/Resolved]
  - Hyperbilirubinaemia [Recovered/Resolved]
  - Hyperbilirubinaemia [Not Recovered/Not Resolved]
  - Jaundice [Recovered/Resolved]
  - Hyperbilirubinaemia [Recovered/Resolved]
  - Hyperbilirubinaemia [Recovered/Resolved]
  - Hyperbilirubinaemia [Recovered/Resolved]
  - Constipation [Recovered/Resolved]
  - Erythema [Recovered/Resolved]
  - Tachycardia [Recovered/Resolved]
  - Hepatocellular injury [Recovered/Resolved]
  - Hyperbilirubinaemia [Recovered/Resolved]
  - Hyperbilirubinaemia [Recovered/Resolved]
  - Rash [Unknown]
  - Hyperbilirubinaemia [Recovered/Resolved]
  - Hepatocellular injury [Recovered/Resolved]
  - Hepatocellular injury [Recovered/Resolved]
  - Hyperbilirubinaemia [Recovered/Resolved]
  - Hyperbilirubinaemia [Recovered/Resolved]
  - Hepatocellular injury [Recovered/Resolved]
  - Hepatocellular injury [Recovered/Resolved]
  - Hyperbilirubinaemia [Recovered/Resolved]
  - Hepatocellular injury [Recovered/Resolved]
  - Hepatocellular injury [Recovered/Resolved]
  - Hyperbilirubinaemia [Recovered/Resolved]

NARRATIVE: CASE EVENT DATE: 20120116
